FAERS Safety Report 8702342 (Version 2)
Quarter: 2013Q1

REPORT INFORMATION
  Report Type: Spontaneous
  Country: US (occurrence: US)
  Receive Date: 20120803
  Receipt Date: 20130301
  Transmission Date: 20140127
  Serious: Yes (Hospitalization)
  Sender: FDA-Public Use
  Company Number: US-BAYER-2012-075608

PATIENT
  Age: 45 Year
  Sex: Female
  Weight: 67.12 kg

DRUGS (15)
  1. YASMIN [Suspect]
     Indication: MENSTRUAL CYCLE MANAGEMENT
     Dosage: UNK
     Dates: start: 200301, end: 2004
  2. NITROGLYCERINE [Concomitant]
  3. DIET FORMULATIONS FOR TREATMENT OF OBESITY [Concomitant]
  4. PERCOCET [Concomitant]
     Dosage: UNK UNK, PRN
     Route: 048
     Dates: start: 1986
  5. IBUPROFEN [Concomitant]
     Dosage: 800 MG, UNK
     Route: 048
     Dates: start: 20030108, end: 20041014
  6. LIPITOR [Concomitant]
     Route: 048
  7. PAXIL [Concomitant]
     Indication: DEPRESSION
     Dosage: 40 MG, DAILY
     Route: 048
     Dates: start: 20030108, end: 20041019
  8. PROZAC [Concomitant]
     Indication: DEPRESSION
     Dosage: UNK
     Route: 048
     Dates: start: 2004
  9. ASPIRIN [Concomitant]
     Dosage: 81 MG, DAILY
     Route: 048
  10. SOMA [Concomitant]
     Dosage: 350 MG, UNK
     Route: 048
  11. ALBUTEROL [Concomitant]
  12. AMBIEN [Concomitant]
  13. PAROXETINE [Concomitant]
  14. TRICOR [Concomitant]
  15. CELEBREX [Concomitant]

REACTIONS (14)
  - Deep vein thrombosis [None]
  - Pulmonary embolism [None]
  - Anxiety [None]
  - Emotional distress [None]
  - General physical health deterioration [None]
  - Injury [None]
  - Pain [None]
  - Pain [None]
  - Depression [None]
  - Fatigue [None]
  - Dyspnoea [None]
  - Asthma [None]
  - Mental disorder [None]
  - Off label use [None]
